FAERS Safety Report 5355098-3 (Version None)
Quarter: 2007Q2

REPORT INFORMATION
  Report Type: 
  Country: None (occurrence: None)
  Receive Date: 20070613
  Receipt Date: 20070605
  Transmission Date: 20071010
  Serious: Yes (Hospitalization)
  Sender: FDA-Public Use
  Company Number: PHRM2007FR01514

PATIENT
  Age: 43 Year
  Sex: Male
  Weight: 72 kg

DRUGS (3)
  1. ALPHA AMYLASE [Concomitant]
     Indication: NASOPHARYNGITIS
     Dates: start: 20061027, end: 20061101
  2. PIVALONE [Concomitant]
     Indication: NASOPHARYNGITIS
     Dates: start: 20061027, end: 20061101
  3. VOLTAREN [Suspect]
     Indication: NASOPHARYNGITIS
     Dosage: 12.5 MG, TID
     Route: 048
     Dates: start: 20061027, end: 20061102

REACTIONS (7)
  - ABDOMINAL PAIN [None]
  - C-REACTIVE PROTEIN INCREASED [None]
  - EPIGASTRIC DISCOMFORT [None]
  - LIPASE INCREASED [None]
  - PANCREATITIS ACUTE [None]
  - SERUM FERRITIN INCREASED [None]
  - WHITE BLOOD CELL COUNT INCREASED [None]
